FAERS Safety Report 20472067 (Version 1)
Quarter: 2022Q1

REPORT INFORMATION
  Report Type: Spontaneous
  Country: AU (occurrence: AU)
  Receive Date: 20220214
  Receipt Date: 20220214
  Transmission Date: 20220424
  Serious: Yes (Hospitalization)
  Sender: FDA-Public Use
  Company Number: AU-009507513-2202AUS002650

PATIENT
  Sex: Male

DRUGS (1)
  1. ONCOTICE [Suspect]
     Active Substance: BACILLUS CALMETTE-GUERIN SUBSTRAIN TICE LIVE ANTIGEN
     Indication: Bladder cancer

REACTIONS (4)
  - Haematuria [Unknown]
  - Haemorrhage urinary tract [Unknown]
  - Intensive care [Unknown]
  - Pain [Unknown]
